FAERS Safety Report 12517574 (Version 1)
Quarter: 2016Q2

REPORT INFORMATION
  Report Type: Spontaneous
  Country: AT (occurrence: AT)
  Receive Date: 20160630
  Receipt Date: 20160630
  Transmission Date: 20160815
  Serious: Yes (Other)
  Sender: FDA-Public Use
  Company Number: AT-WATSON-2016-13943

PATIENT
  Age: 24 Year
  Weight: 68.1 kg

DRUGS (12)
  1. ABILIFY [Suspect]
     Active Substance: ARIPIPRAZOLE
     Dosage: UNK (DOSIS TAPERING)
     Route: 065
     Dates: start: 20150530, end: 20150531
  2. LEPONEX [Concomitant]
     Active Substance: CLOZAPINE
     Dosage: 100-400 MG, DOSIS INCREASING
     Route: 065
     Dates: start: 20150530, end: 20150624
  3. OMACOR [Concomitant]
     Active Substance: OMEGA-3-ACID ETHYL ESTERS
     Dosage: 1 DF, TID
     Route: 065
     Dates: start: 20150604
  4. CITALOPRAM [Suspect]
     Active Substance: CITALOPRAM HYDROBROMIDE
     Indication: PRODUCT USED FOR UNKNOWN INDICATION
     Dosage: 20 MG, UNKNOWN
     Route: 065
     Dates: start: 20150109
  5. INDERAL [Concomitant]
     Active Substance: PROPRANOLOL HYDROCHLORIDE
     Dosage: 30 MG, UNK
     Route: 065
     Dates: start: 20150618
  6. ABILIFY [Suspect]
     Active Substance: ARIPIPRAZOLE
     Indication: PRODUCT USED FOR UNKNOWN INDICATION
     Dosage: 15 MG, UNK
     Route: 065
     Dates: start: 20150109, end: 20160529
  7. LEPONEX [Concomitant]
     Active Substance: CLOZAPINE
     Dosage: 400 MG, UNK
     Route: 065
     Dates: start: 20150625, end: 20150707
  8. OMACOR [Concomitant]
     Active Substance: OMEGA-3-ACID ETHYL ESTERS
     Indication: PRODUCT USED FOR UNKNOWN INDICATION
     Dosage: 1 DF, BID
     Route: 065
     Dates: start: 20150603, end: 20160603
  9. LEPONEX [Concomitant]
     Active Substance: CLOZAPINE
     Dosage: 450 MG, UNK
     Route: 065
     Dates: start: 20150709
  10. INDERAL [Concomitant]
     Active Substance: PROPRANOLOL HYDROCHLORIDE
     Indication: PRODUCT USED FOR UNKNOWN INDICATION
     Dosage: 20 MG, UNK
     Route: 065
     Dates: start: 20150515, end: 20150517
  11. LEPONEX [Concomitant]
     Active Substance: CLOZAPINE
     Indication: PRODUCT USED FOR UNKNOWN INDICATION
     Dosage: 75 MG, UNKNOWN
     Route: 065
     Dates: start: 201503, end: 20150529
  12. LEPONEX [Concomitant]
     Active Substance: CLOZAPINE
     Dosage: 425 MG, UNK
     Route: 065
     Dates: start: 20150708, end: 20150708

REACTIONS (1)
  - Dyskinesia [Recovered/Resolved]

NARRATIVE: CASE EVENT DATE: 201604
